FAERS Safety Report 18321113 (Version 1)
Quarter: 2020Q3

REPORT INFORMATION
  Report Type: Spontaneous
  Country: FR (occurrence: FR)
  Receive Date: 20200928
  Receipt Date: 20200928
  Transmission Date: 20201103
  Serious: Yes (Hospitalization)
  Sender: FDA-Public Use
  Company Number: FR-MYLANLABS-2020M1080795

PATIENT
  Age: 79 Year
  Sex: Male
  Weight: 106 kg

DRUGS (12)
  1. OXYCODONE [Concomitant]
     Active Substance: OXYCODONE
     Dosage: UNK
  2. ATORVASTATINE                      /01326101/ [Concomitant]
     Active Substance: ATORVASTATIN
     Dosage: UNK
  3. CETIRIZINE [Suspect]
     Active Substance: CETIRIZINE HYDROCHLORIDE
     Indication: HYPERSENSITIVITY
     Dosage: 10 MILLIGRAM, QD
     Route: 048
     Dates: end: 20200821
  4. COLCHICINE OPOCALCIUM [Suspect]
     Active Substance: COLCHICINE
     Indication: HYPERURICAEMIA
     Dosage: 0.5 MILLIGRAM, QD
     Route: 048
     Dates: start: 20200813, end: 20200821
  5. LEVOFLOXACIN. [Suspect]
     Active Substance: LEVOFLOXACIN
     Indication: INFECTION
     Dosage: 500 MILLIGRAM, QD
     Route: 048
     Dates: start: 20200805, end: 20200821
  6. LANSOPRAZOLE. [Concomitant]
     Active Substance: LANSOPRAZOLE
     Dosage: UNK
  7. LAROXYL [Suspect]
     Active Substance: AMITRIPTYLINE HYDROCHLORIDE
     Indication: NERVOUS SYSTEM DISORDER
     Dosage: 20 GTT DROPS, QD
     Route: 048
     Dates: start: 20200812, end: 20200820
  8. FUROSEMIDE. [Concomitant]
     Active Substance: FUROSEMIDE
     Dosage: UNK
  9. PIPERACILLIN AND TAZOBACTAM [Suspect]
     Active Substance: PIPERACILLIN SODIUM\TAZOBACTAM SODIUM
     Indication: INFECTION
     Dosage: 16 GRAM, QD
     Route: 042
     Dates: start: 20200803, end: 20200821
  10. DIFFU K [Concomitant]
     Active Substance: POTASSIUM CHLORIDE
     Dosage: UNK
  11. RIVAROXABAN [Concomitant]
     Active Substance: RIVAROXABAN
     Dosage: UNK
  12. RIFADINE                           /00146901/ [Suspect]
     Active Substance: RIFAMPIN
     Indication: INFECTION
     Dosage: 600 MILLIGRAM, QD
     Route: 048
     Dates: start: 20200805, end: 20200821

REACTIONS (2)
  - Thrombocytopenic purpura [Unknown]
  - Immune thrombocytopenia [Recovered/Resolved]

NARRATIVE: CASE EVENT DATE: 20200820
